FAERS Safety Report 5698078-0 (Version None)
Quarter: 2008Q2

REPORT INFORMATION
  Report Type: 
  Country: None (occurrence: None)
  Receive Date: 20080408
  Receipt Date: 20080331
  Transmission Date: 20081010
  Serious: Yes (Hospitalization)
  Sender: FDA-Public Use
  Company Number: US-ELI_LILLY_AND_COMPANY-US200803006862

PATIENT
  Sex: Female

DRUGS (2)
  1. HUMALOG [Suspect]
  2. HUMULIN N [Suspect]
     Dosage: UNK, UNK

REACTIONS (2)
  - BLOOD GLUCOSE FLUCTUATION [None]
  - HOSPITALISATION [None]
